FAERS Safety Report 4324648-8 (Version None)
Quarter: 2004Q1

REPORT INFORMATION
  Report Type: 
  Country: None (occurrence: None)
  Receive Date: 20040323
  Receipt Date: 20040312
  Transmission Date: 20041129
  Serious: Yes (Hospitalization)
  Sender: FDA-Public Use
  Company Number: 6007889

PATIENT
  Age: 79 Year
  Sex: Female

DRUGS (4)
  1. LEVOTHYROXINE SODIUM [Suspect]
     Indication: DRUG USE FOR UNKNOWN INDICATION
     Dosage: 100 MCG, ORAL
     Route: 048
     Dates: start: 20040126
  2. ALLOPURINOL [Suspect]
     Indication: GOUTY ARTHRITIS
     Dosage: 100 MG, ORAL
     Route: 048
     Dates: start: 20031212, end: 20040120
  3. POTASSIUM CHLORIDE [Suspect]
     Indication: DRUG USE FOR UNKNOWN INDICATION
     Dosage: 600 MG, ORAL
     Route: 048
     Dates: end: 20040126
  4. RAMIPRIL [Suspect]
     Indication: ESSENTIAL HYPERTENSION
     Dosage: 5 MG, ORAL
     Route: 048
     Dates: end: 20040126

REACTIONS (8)
  - DERMATITIS ALLERGIC [None]
  - DERMATITIS BULLOUS [None]
  - DERMATITIS EXFOLIATIVE [None]
  - EYELID OEDEMA [None]
  - OEDEMA [None]
  - PRURITUS [None]
  - RASH MACULAR [None]
  - TOXIC SKIN ERUPTION [None]
